FAERS Safety Report 5737657-9 (Version None)
Quarter: 2008Q2

REPORT INFORMATION
  Report Type: 
  Country: None (occurrence: None)
  Receive Date: 20080507
  Receipt Date: 20080110
  Transmission Date: 20081010
  Serious: Yes (Hospitalization)
  Sender: FDA-Public Use
  Company Number: 540639

PATIENT
  Age: 24 Month
  Sex: Female

DRUGS (2)
  1. NAPROXEN [Suspect]
     Indication: JUVENILE ARTHRITIS
  2. METHOTREXATE [Suspect]
     Indication: JUVENILE ARTHRITIS
     Dosage: 12 MG/M2 ORAL
     Route: 048

REACTIONS (3)
  - HEPATITIS [None]
  - HYPERAMMONAEMIA [None]
  - HYPOGLYCAEMIA [None]
